FAERS Safety Report 6704859-4 (Version None)
Quarter: 2010Q2

REPORT INFORMATION
  Report Type: 
  Country: None (occurrence: None)
  Receive Date: 20100430
  Receipt Date: 20091223
  Transmission Date: 20101027
  Serious: No
  Sender: FDA-Public Use
  Company Number: US-ASTRAZENECA-2009SE33375

PATIENT
  Age: 73 Year
  Sex: Male
  Weight: 83.9 kg

DRUGS (10)
  1. NEXIUM [Suspect]
     Route: 048
     Dates: start: 20091223
  2. FLOMAX [Concomitant]
  3. PROSCAR [Concomitant]
  4. LIPITOR [Concomitant]
  5. BENZAPRIL [Concomitant]
  6. LUMIGAN [Concomitant]
  7. ANDROGEL [Concomitant]
  8. VIT.D [Concomitant]
  9. GLUCOSAMINE [Concomitant]
  10. ASPIRIN [Concomitant]

REACTIONS (1)
  - CONDITION AGGRAVATED [None]
